FAERS Safety Report 5364017-5 (Version None)
Quarter: 2007Q2

REPORT INFORMATION
  Report Type: 
  Country: None (occurrence: None)
  Receive Date: 20070620
  Receipt Date: 20070608
  Transmission Date: 20071010
  Serious: Yes (Other)
  Sender: FDA-Public Use
  Company Number: JP-PFIZER INC-2007031332

PATIENT
  Sex: Female
  Weight: 51 kg

DRUGS (6)
  1. GABAPEN [Suspect]
     Indication: EPILEPSY
     Route: 048
     Dates: start: 20061206
  2. ALL OTHER THERAPEUTIC PRODUCTS [Concomitant]
  3. ALEVIATIN [Concomitant]
     Route: 048
  4. TEGRETOL [Concomitant]
     Route: 048
     Dates: start: 20030821
  5. DEPAKENE [Concomitant]
     Route: 048
     Dates: start: 20021118
  6. FAMOTIDINE [Concomitant]
     Route: 048
     Dates: start: 20061128

REACTIONS (2)
  - OBSESSIVE THOUGHTS [None]
  - PERSECUTORY DELUSION [None]
